FAERS Safety Report 17881321 (Version 3)
Quarter: 2020Q3

REPORT INFORMATION
  Report Type: Report from Study
  Country: FR (occurrence: FR)
  Receive Date: 20200610
  Receipt Date: 20200702
  Transmission Date: 20201103
  Serious: Yes (Life-Threatening)
  Sender: FDA-Public Use
  Company Number: FR-PFIZER INC-2020221759

PATIENT
  Weight: 38.9 kg

DRUGS (15)
  1. PLITICAN [Concomitant]
     Active Substance: ALIZAPRIDE HYDROCHLORIDE
     Dosage: 25 MG, 4X/DAY
     Dates: start: 20200531, end: 20200601
  2. NALBUPHINE [Concomitant]
     Active Substance: NALBUPHINE
     Dosage: 8 MG, 4X/DAY
     Dates: start: 20200528
  3. TAZOCILLINE [Concomitant]
     Active Substance: PIPERACILLIN SODIUM\TAZOBACTAM SODIUM
     Dosage: 3 G, 3X/DAY
     Dates: start: 20200531
  4. TOBRADEX [Concomitant]
     Active Substance: DEXAMETHASONE\TOBRAMYCIN
     Dosage: 4 IU, 1X/DAY
     Dates: start: 20200528
  5. VITAMIN K [Concomitant]
     Active Substance: PHYTONADIONE
     Dosage: 10 MG, 1X/DAY
     Dates: start: 20200531, end: 20200602
  6. POLARAMINE [Concomitant]
     Active Substance: DEXCHLORPHENIRAMINE MALEATE
     Dosage: 5 MG, 1X/DAY
     Dates: start: 20200531, end: 20200531
  7. GEMTUZUMAB OZOGAMICIN [Suspect]
     Active Substance: GEMTUZUMAB OZOGAMICIN
     Indication: ACUTE MYELOID LEUKAEMIA
     Dosage: 3.8 MG
     Route: 042
     Dates: start: 20200531, end: 20200531
  8. CYTARABINE. [Suspect]
     Active Substance: CYTARABINE
     Dosage: 120 MG
     Route: 042
     Dates: start: 20200527
  9. AMIKLIN [AMIKACIN] [Concomitant]
     Dosage: 2 IU, 1X/DAY
     Dates: start: 20200531, end: 20200601
  10. MITOXANTRONE HYDROCHLORIDE. [Suspect]
     Active Substance: MITOXANTRONE HYDROCHLORIDE
     Indication: ACUTE MYELOID LEUKAEMIA
     Dosage: 12 MG/M2, 1X/DAY
     Route: 042
     Dates: start: 20200527, end: 20200531
  11. REFRESH CELLUVISC [Concomitant]
     Active Substance: CARBOXYMETHYLCELLULOSE SODIUM
     Dosage: 4 IU, 1X/DAY
     Dates: start: 20200528
  12. ALLOPURINOL. [Concomitant]
     Active Substance: ALLOPURINOL
     Dosage: 100 MG, 3X/DAY
     Dates: start: 20200531, end: 20200604
  13. MYCOSTATINE [Concomitant]
     Active Substance: NYSTATIN
     Dosage: 3 ML, 3X/DAY
     Dates: start: 20200531
  14. ONDANSETRON [Concomitant]
     Active Substance: ONDANSETRON
     Dosage: 6 MG, 2X/DAY
     Dates: start: 20200528
  15. PARACETAMOL [Concomitant]
     Active Substance: ACETAMINOPHEN
     Dosage: 500 MG, 2X/DAY

REACTIONS (1)
  - Febrile neutropenia [Recovered/Resolved]

NARRATIVE: CASE EVENT DATE: 20200531
